FAERS Safety Report 4651599-1 (Version None)
Quarter: 2005Q2

REPORT INFORMATION
  Report Type: 
  Country: None (occurrence: None)
  Receive Date: 20050502
  Receipt Date: 20050415
  Transmission Date: 20051028
  Serious: Yes (Hospitalization, Other)
  Sender: FDA-Public Use
  Company Number: 2005BI006427

PATIENT
  Age: 38 Year
  Sex: Male

DRUGS (5)
  1. AVONEX [Suspect]
     Indication: MULTIPLE SCLEROSIS
     Dosage: 30  UG; QW; IM
     Route: 030
     Dates: start: 20041115
  2. RELPAX [Concomitant]
  3. NEURONTIN [Concomitant]
  4. REQUIP [Concomitant]
  5. BACLOFEN [Concomitant]

REACTIONS (2)
  - ASTHMA [None]
  - NEPHROLITHIASIS [None]
